FAERS Safety Report 18667819 (Version 1)
Quarter: 2020Q4

REPORT INFORMATION
  Report Type: Spontaneous
  Country: CH (occurrence: CH)
  Receive Date: 20201228
  Receipt Date: 20201228
  Transmission Date: 20210114
  Serious: Yes (Other)
  Sender: FDA-Public Use
  Company Number: CH-ROCHE-2738603

PATIENT
  Sex: Female
  Weight: 70.3 kg

DRUGS (5)
  1. HERCEPTIN [Suspect]
     Active Substance: TRASTUZUMAB
     Indication: INTRADUCTAL PROLIFERATIVE BREAST LESION
     Route: 065
  2. CIMIFEMIN UNO [Concomitant]
  3. KALCIPOS D3 [Concomitant]
  4. LETROZOL [Suspect]
     Active Substance: LETROZOLE
     Indication: INTRADUCTAL PROLIFERATIVE BREAST LESION
     Route: 048
     Dates: start: 201912
  5. TORASEMID [Concomitant]
     Active Substance: TORSEMIDE

REACTIONS (2)
  - Arthralgia [Recovered/Resolved]
  - Joint stiffness [Recovered/Resolved]
